FAERS Safety Report 4385328-6 (Version None)
Quarter: 2004Q2

REPORT INFORMATION
  Report Type: 
  Country: None (occurrence: None)
  Receive Date: 20040622
  Receipt Date: 20040609
  Transmission Date: 20050107
  Serious: Yes (Life-Threatening, Other)
  Sender: FDA-Public Use
  Company Number: FI-JNJFOC-20040602739

PATIENT
  Age: 46 Year
  Sex: Male
  Weight: 92 kg

DRUGS (3)
  1. REMICADE [Suspect]
     Indication: RHEUMATOID ARTHRITIS
     Dosage: INTRAVENOUS
     Route: 042
     Dates: start: 20031023, end: 20040408
  2. METHOTREXATE [Suspect]
     Indication: DRUG USE FOR UNKNOWN INDICATION
     Dosage: 25 MG, 1 IN 1 WEEK, ORAL
     Route: 048
     Dates: start: 20030924, end: 20040602
  3. GLUCOCORTICOID INJECTION (ALL OTHER THERAPEUTIC PRODUCTS) INJECTION [Suspect]
     Indication: DRUG USE FOR UNKNOWN INDICATION

REACTIONS (7)
  - DRUG INTERACTION [None]
  - HEPATIC ENZYME INCREASED [None]
  - JOINT SWELLING [None]
  - LUNG INFILTRATION [None]
  - OEDEMA PERIPHERAL [None]
  - PYREXIA [None]
  - TENOSYNOVITIS [None]
